FAERS Safety Report 16338756 (Version 2)
Quarter: 2019Q2

REPORT INFORMATION
  Report Type: Spontaneous
  Country: US (occurrence: US)
  Receive Date: 20190521
  Receipt Date: 20190522
  Transmission Date: 20190711
  Serious: Yes (Other)
  Sender: FDA-Public Use
  Company Number: US-BAYER-2019-095235

PATIENT
  Sex: Male
  Weight: 77 kg

DRUGS (5)
  1. LIDOCAINE. [Concomitant]
     Active Substance: LIDOCAINE
  2. EPINEPHRINE. [Concomitant]
     Active Substance: EPINEPHRINE
  3. PREDNISONE. [Concomitant]
     Active Substance: PREDNISONE
     Dosage: UNK
  4. AFRIN ORIGINAL [Suspect]
     Active Substance: OXYMETAZOLINE HYDROCHLORIDE
     Dosage: 1 SPRAY EACH NOSTRIL, BID
     Route: 055
     Dates: end: 201904
  5. SALINE NASAL MIST [Concomitant]
     Dosage: UNK

REACTIONS (14)
  - Inflammatory pain [Not Recovered/Not Resolved]
  - Gluten sensitivity [Unknown]
  - Insomnia [Not Recovered/Not Resolved]
  - Drug dependence [None]
  - Incorrect dose administered [Unknown]
  - Influenza like illness [Not Recovered/Not Resolved]
  - Incorrect product administration duration [Unknown]
  - Asthenia [Not Recovered/Not Resolved]
  - Myocardial infarction [None]
  - Nasal congestion [None]
  - Anxiety [Not Recovered/Not Resolved]
  - Tension [Not Recovered/Not Resolved]
  - Feeling jittery [Not Recovered/Not Resolved]
  - Weight decreased [Unknown]

NARRATIVE: CASE EVENT DATE: 2015
